FAERS Safety Report 10834294 (Version 1)
Quarter: 2015Q1

REPORT INFORMATION
  Report Type: Report from Study
  Country: US (occurrence: US)
  Receive Date: 20150219
  Receipt Date: 20150219
  Transmission Date: 20150721
  Serious: No
  Sender: FDA-Public Use
  Company Number: US-ABBVIE-14P-163-1210340-00

PATIENT
  Age: 24 Year
  Sex: Female
  Weight: 80.81 kg

DRUGS (8)
  1. PREDNISONE. [Suspect]
     Active Substance: PREDNISONE
  2. PREDNISONE. [Suspect]
     Active Substance: PREDNISONE
     Dates: end: 20140319
  3. HUMIRA [Suspect]
     Active Substance: ADALIMUMAB
     Route: 058
     Dates: start: 20140312
  4. METHOTREXATE [Concomitant]
     Active Substance: METHOTREXATE
     Dates: start: 20140310
  5. PREDNISONE. [Suspect]
     Active Substance: PREDNISONE
     Indication: PRODUCT USED FOR UNKNOWN INDICATION
     Dosage: FOR FEW DAYS
  6. PREDNISONE. [Suspect]
     Active Substance: PREDNISONE
  7. METHOTREXATE [Concomitant]
     Active Substance: METHOTREXATE
     Indication: PRODUCT USED FOR UNKNOWN INDICATION
  8. HUMIRA [Suspect]
     Active Substance: ADALIMUMAB
     Indication: RHEUMATOID ARTHRITIS
     Route: 058
     Dates: start: 201308, end: 201402

REACTIONS (8)
  - Rheumatoid arthritis [Recovering/Resolving]
  - Ear infection [Recovering/Resolving]
  - Lymphadenopathy [Unknown]
  - Bacterial infection [Unknown]
  - Pain [Unknown]
  - Nasopharyngitis [Recovering/Resolving]
  - Joint effusion [Unknown]
  - Sialoadenitis [Recovering/Resolving]

NARRATIVE: CASE EVENT DATE: 201402
